FAERS Safety Report 16723179 (Version 1)
Quarter: 2019Q3

REPORT INFORMATION
  Report Type: Spontaneous
  Country: BR (occurrence: BR)
  Receive Date: 20190821
  Receipt Date: 20190821
  Transmission Date: 20191005
  Serious: Yes (Hospitalization, Other)
  Sender: FDA-Public Use
  Company Number: BR-SA-2019SA221212

PATIENT
  Sex: Female
  Weight: 2.9 kg

DRUGS (1)
  1. CLEXANE [Suspect]
     Active Substance: ENOXAPARIN SODIUM
     Dosage: 40 MG/ 0M4ML / INJECTABLE SOLUTION
     Route: 063

REACTIONS (3)
  - Exposure via breast milk [Unknown]
  - Choking [Unknown]
  - Cyanosis [Unknown]
